FAERS Safety Report 6069009-9 (Version None)
Quarter: 2009Q1

REPORT INFORMATION
  Report Type: 
  Country: None (occurrence: None)
  Receive Date: 20090206
  Receipt Date: 20090129
  Transmission Date: 20090719
  Serious: Yes (Hospitalization)
  Sender: FDA-Public Use
  Company Number: US-ELI_LILLY_AND_COMPANY-US200810003616

PATIENT
  Sex: Male
  Weight: 113 kg

DRUGS (3)
  1. BYETTA [Suspect]
     Indication: TYPE 2 DIABETES MELLITUS
     Dosage: 5 UG, 2/D
     Dates: start: 20070105, end: 20070205
  2. BYETTA [Suspect]
     Dosage: 10 UG, 2/D
     Dates: start: 20070205, end: 20081007
  3. LIPITOR [Concomitant]
     Indication: BLOOD CHOLESTEROL INCREASED

REACTIONS (2)
  - PANCREATITIS [None]
  - WEIGHT DECREASED [None]
